FAERS Safety Report 12720023 (Version 1)
Quarter: 2016Q3

REPORT INFORMATION
  Report Type: Spontaneous
  Country: US (occurrence: US)
  Receive Date: 20160907
  Receipt Date: 20160907
  Transmission Date: 20161109
  Serious: No
  Sender: FDA-Public Use
  Company Number: US-AUROBINDO-AUR-APL-2015-11925

PATIENT
  Sex: Female
  Weight: 53.98 kg

DRUGS (1)
  1. HYDROCHLOROTHIAZIDE TABLETS USP 25 MG [Suspect]
     Active Substance: HYDROCHLOROTHIAZIDE
     Indication: HYPERTENSION
     Dosage: 25 MG, DAILY
     Route: 048

REACTIONS (1)
  - Micturition disorder [Unknown]
